FAERS Safety Report 6117065-1 (Version None)
Quarter: 2009Q1

REPORT INFORMATION
  Report Type: 
  Country: None (occurrence: None)
  Receive Date: 20090314
  Receipt Date: 20090106
  Transmission Date: 20090719
  Serious: No
  Sender: FDA-Public Use
  Company Number: US-ABBOTT-09P-163-0496132-00

PATIENT
  Sex: Female
  Weight: 90.8 kg

DRUGS (4)
  1. HUMIRA [Suspect]
     Indication: RHEUMATOID ARTHRITIS
     Dosage: SYRINGE
     Route: 058
     Dates: start: 20030101
  2. HUMIRA [Suspect]
     Route: 058
     Dates: start: 20060101
  3. VITAMIN A + D [Suspect]
     Indication: DRUG USE FOR UNKNOWN INDICATION
     Dates: start: 20081201
  4. FOLIC ACID [Suspect]
     Indication: DRUG USE FOR UNKNOWN INDICATION
     Dates: start: 20081201

REACTIONS (2)
  - ARTHRITIS [None]
  - JOINT SWELLING [None]
